FAERS Safety Report 14745064 (Version 11)
Quarter: 2018Q4

REPORT INFORMATION
  Report Type: Spontaneous
  Country: US (occurrence: US)
  Receive Date: 20180411
  Receipt Date: 20181109
  Transmission Date: 20190204
  Serious: No
  Sender: FDA-Public Use
  Company Number: US-PFIZER INC-2018145743

PATIENT
  Age: 71 Year
  Sex: Female
  Weight: 52 kg

DRUGS (7)
  1. EUCRISA [Suspect]
     Active Substance: CRISABOROLE
     Dosage: UNK, 1X/DAY (AT NIGHT)
     Route: 061
  2. PROPYLENE GLYCOL [Suspect]
     Active Substance: PROPYLENE GLYCOL
     Dosage: UNK
  3. PETROLEUM JELLY [Concomitant]
     Active Substance: PETROLATUM
     Indication: DRY SKIN
     Dosage: ONCE OR TWICE A DAY
  4. EUCRISA [Suspect]
     Active Substance: CRISABOROLE
     Indication: ECZEMA
     Dosage: UNK, 2X/DAY
     Route: 061
  5. EUCRISA [Suspect]
     Active Substance: CRISABOROLE
     Dosage: UNK, 2X/DAY
     Route: 061
  6. PETROLEUM JELLY [Concomitant]
     Active Substance: PETROLATUM
     Indication: PROPHYLAXIS
  7. SIMVASTATIN. [Concomitant]
     Active Substance: SIMVASTATIN
     Indication: BLOOD CHOLESTEROL INCREASED
     Dosage: 20 MG, 1X/DAY(ONCE IN THE EVENING)
     Route: 048

REACTIONS (10)
  - Intentional product misuse [Unknown]
  - Condition aggravated [Unknown]
  - Depression [Unknown]
  - Rash [Unknown]
  - Allergic reaction to excipient [Unknown]
  - Rash macular [Unknown]
  - Drug ineffective [Unknown]
  - Product complaint [Unknown]
  - Stress [Unknown]
  - Pruritus [Unknown]
